APPROVED DRUG PRODUCT: KYLEENA
Active Ingredient: LEVONORGESTREL
Strength: 19.5MG
Dosage Form/Route: SYSTEM;INTRAUTERINE
Application: N208224 | Product #001
Applicant: BAYER HEALTHCARE PHARMACEUTICALS INC
Approved: Sep 16, 2016 | RLD: Yes | RS: Yes | Type: RX

PATENTS:
Patent 11850182 | Expires: Sep 14, 2029
Patent 10561524 | Expires: Sep 16, 2029
Patent 11628088 | Expires: Feb 7, 2027